FAERS Safety Report 5476048-5 (Version None)
Quarter: 2007Q4

REPORT INFORMATION
  Report Type: 
  Country: None (occurrence: None)
  Receive Date: 20071003
  Receipt Date: 20070924
  Transmission Date: 20080405
  Serious: Yes (Hospitalization)
  Sender: FDA-Public Use
  Company Number: PHHO2007US15285

PATIENT
  Age: 34 Year
  Sex: Male
  Weight: 90 kg

DRUGS (10)
  1. LISINOPRIL [Concomitant]
  2. LOPRESSOR [Concomitant]
  3. ADALAT [Concomitant]
  4. LIPITOR [Concomitant]
  5. ASPIRIN [Concomitant]
  6. PROTONIX [Concomitant]
  7. CERTICAN [Suspect]
     Indication: RENAL TRANSPLANT
     Dosage: 1.44 G, QD
     Route: 048
     Dates: start: 20070111
  8. CERTICAN [Suspect]
     Dosage: 360 MG, Q12H
     Route: 048
     Dates: end: 20070920
  9. NEORAL [Concomitant]
     Indication: RENAL TRANSPLANT
     Dosage: 275 MG DAILY
     Route: 048
  10. NEORAL [Concomitant]
     Dosage: 100 MG, Q12H

REACTIONS (8)
  - CYTOMEGALOVIRUS INFECTION [None]
  - DEHYDRATION [None]
  - DIARRHOEA [None]
  - FATIGUE [None]
  - HYPOTENSION [None]
  - LEUKOCYTOSIS [None]
  - LIVER FUNCTION TEST ABNORMAL [None]
  - PYREXIA [None]
